FAERS Safety Report 24215863 (Version 1)
Quarter: 2024Q3

REPORT INFORMATION
  Report Type: Spontaneous
  Country: KR (occurrence: None)
  Receive Date: 20240816
  Receipt Date: 20240816
  Transmission Date: 20241016
  Serious: Yes (Death, Other)
  Sender: ASTRAZENECA
  Company Number: 2024A186078

PATIENT
  Age: 20455 Day
  Sex: Male

DRUGS (1)
  1. TAGRISSO [Suspect]
     Active Substance: OSIMERTINIB
     Dosage: 22 TABLETS
     Route: 048
     Dates: start: 20240101

REACTIONS (2)
  - Cardio-respiratory arrest [Fatal]
  - Metastases to lung [Unknown]

NARRATIVE: CASE EVENT DATE: 20240714
